FAERS Safety Report 13445087 (Version 1)
Quarter: 2017Q2

REPORT INFORMATION
  Report Type: Spontaneous
  Country: PL (occurrence: PL)
  Receive Date: 20170414
  Receipt Date: 20170414
  Transmission Date: 20170830
  Serious: Yes (Other)
  Sender: FDA-Public Use
  Company Number: PL-TEVA-758875ISR

PATIENT
  Sex: Male

DRUGS (3)
  1. OXYCODONE [Suspect]
     Active Substance: OXYCODONE
  2. XARELTO [Suspect]
     Active Substance: RIVAROXABAN
  3. LYRICA [Suspect]
     Active Substance: PREGABALIN

REACTIONS (1)
  - Hepatic enzyme increased [Unknown]
